FAERS Safety Report 19009287 (Version 2)
Quarter: 2021Q1

REPORT INFORMATION
  Report Type: Spontaneous
  Country: IN (occurrence: IN)
  Receive Date: 20210316
  Receipt Date: 20210330
  Transmission Date: 20210420
  Serious: Yes (Life-Threatening, Hospitalization, Other)
  Sender: FDA-Public Use
  Company Number: IN-BRISTOL-MYERS SQUIBB COMPANY-BMS-2021-022863

PATIENT
  Age: 52 Year
  Sex: Male

DRUGS (4)
  1. FLUCONAZOLE. [Interacting]
     Active Substance: FLUCONAZOLE
     Indication: DISSEMINATED CRYPTOCOCCOSIS
     Dosage: 400 MILLIGRAM, QD (3 WEEK DURATION)
     Route: 048
  2. FLUCONAZOLE. [Interacting]
     Active Substance: FLUCONAZOLE
     Indication: CRYPTOCOCCOSIS
  3. WARFARIN SODIUM. [Suspect]
     Active Substance: WARFARIN SODIUM
     Indication: THROMBOSIS PROPHYLAXIS
     Dosage: FOR 3 WEEK DURATION
     Route: 065
  4. FLUCONAZOLE. [Interacting]
     Active Substance: FLUCONAZOLE
     Indication: INTERVERTEBRAL DISCITIS

REACTIONS (2)
  - Coagulopathy [Unknown]
  - Drug interaction [Unknown]
